FAERS Safety Report 20112295 (Version 1)
Quarter: 2021Q4

REPORT INFORMATION
  Report Type: Spontaneous
  Country: US (occurrence: US)
  Receive Date: 20211125
  Receipt Date: 20211125
  Transmission Date: 20220303
  Serious: No
  Sender: FDA-Public Use
  Company Number: US-ALNYLAM PHARMACEUTICALS, INC.-ALN-2021-003088

PATIENT

DRUGS (1)
  1. ONPATTRO [Suspect]
     Active Substance: PATISIRAN SODIUM
     Indication: Amyloidosis senile
     Dosage: UNK
     Route: 042
     Dates: start: 20210806

REACTIONS (9)
  - Hypoaesthesia [Unknown]
  - Peripheral swelling [Unknown]
  - Heel fat pad syndrome [Unknown]
  - Pain in extremity [Unknown]
  - Arthralgia [Unknown]
  - Muscle rigidity [Unknown]
  - Muscle spasms [Unknown]
  - Frustration tolerance decreased [Unknown]
  - Balance disorder [Unknown]
